FAERS Safety Report 6355695-2 (Version None)
Quarter: 2009Q3

REPORT INFORMATION
  Report Type: 
  Country: None (occurrence: None)
  Receive Date: 20090910
  Receipt Date: 20090903
  Transmission Date: 20100115
  Serious: Yes (Other)
  Sender: FDA-Public Use
  Company Number: 2009SP023676

PATIENT
  Age: 30 Year
  Sex: Female

DRUGS (1)
  1. REMEGRIL       (MIRTAZAPINE) [Suspect]
     Indication: DRUG USE FOR UNKNOWN INDICATION

REACTIONS (1)
  - BLOOD ALKALINE PHOSPHATASE INCREASED [None]
